FAERS Safety Report 20983077 (Version 2)
Quarter: 2022Q4

REPORT INFORMATION
  Report Type: Spontaneous
  Country: US (occurrence: US)
  Receive Date: 20220620
  Receipt Date: 20221215
  Transmission Date: 20230113
  Serious: Yes (Other)
  Sender: FDA-Public Use
  Company Number: US-CELGENE-USA-20210805706

PATIENT
  Age: 81 Year
  Sex: Male
  Weight: 89.35 kg

DRUGS (2)
  1. REVLIMID [Suspect]
     Active Substance: LENALIDOMIDE
     Indication: Plasma cell myeloma
     Dosage: 25 MILLIGRAM, FREQUENCY: DAILY X 14 DAYS ON AND 7 DAYS OFF
     Route: 048
     Dates: start: 20210127
  2. REVLIMID [Suspect]
     Active Substance: LENALIDOMIDE
     Dosage: 10 MG DAILY X 21 DAYS EVERY 28 DAYS
     Route: 048
     Dates: start: 20221019

REACTIONS (9)
  - Platelet count decreased [Recovering/Resolving]
  - Hair growth abnormal [Not Recovered/Not Resolved]
  - Joint swelling [Not Recovered/Not Resolved]
  - Asthenia [Not Recovered/Not Resolved]
  - Rash erythematous [Recovering/Resolving]
  - Viral infection [Recovering/Resolving]
  - White blood cell count decreased [Recovering/Resolving]
  - Neuropathy peripheral [Recovering/Resolving]
  - Off label use [Unknown]

NARRATIVE: CASE EVENT DATE: 20210101
